FAERS Safety Report 9477376 (Version 3)
Quarter: 2013Q4

REPORT INFORMATION
  Report Type: Spontaneous
  Country: US (occurrence: US)
  Receive Date: 20130826
  Receipt Date: 20131104
  Transmission Date: 20140711
  Serious: Yes (Hospitalization, Other)
  Sender: FDA-Public Use
  Company Number: US-PFIZER INC-2013241418

PATIENT
  Age: 66 Year
  Sex: Female

DRUGS (2)
  1. BOSULIF [Suspect]
     Indication: CHRONIC MYELOID LEUKAEMIA
     Dosage: 500 MG, UNK
     Dates: start: 20130614
  2. BOSULIF [Suspect]
     Dosage: 400 MG, UNK

REACTIONS (7)
  - Toxicity to various agents [Unknown]
  - Urinary tract infection [Not Recovered/Not Resolved]
  - Fungal infection [Unknown]
  - Abdominal pain [Unknown]
  - Diarrhoea [Unknown]
  - Pain [Unknown]
  - Laboratory test abnormal [Unknown]
